FAERS Safety Report 11376059 (Version 1)
Quarter: 2015Q3

REPORT INFORMATION
  Report Type: Spontaneous
  Country: FR (occurrence: FR)
  Receive Date: 20150813
  Receipt Date: 20150813
  Transmission Date: 20151125
  Serious: Yes (Hospitalization)
  Sender: FDA-Public Use
  Company Number: FR-ELI_LILLY_AND_COMPANY-FR201508000577

PATIENT
  Age: 65 Year
  Sex: Female

DRUGS (6)
  1. ENDOXAN                            /00021101/ [Suspect]
     Active Substance: CYCLOPHOSPHAMIDE
     Indication: OVARIAN CANCER
     Dosage: UNK, UNKNOWN
     Route: 042
     Dates: start: 2001
  2. GEMZAR [Suspect]
     Active Substance: GEMCITABINE HYDROCHLORIDE
     Indication: OVARIAN CANCER
     Dosage: UNK, UNKNOWN
     Route: 042
     Dates: start: 2001
  3. CARBOPLATIN. [Suspect]
     Active Substance: CARBOPLATIN
     Indication: OVARIAN CANCER
     Dosage: UNK, UNKNOWN
     Route: 042
     Dates: start: 2001
  4. TAXOL [Suspect]
     Active Substance: PACLITAXEL
     Indication: OVARIAN CANCER
     Dosage: UNK, UNKNOWN
     Route: 042
     Dates: start: 2001
  5. CAELYX [Suspect]
     Active Substance: DOXORUBICIN HYDROCHLORIDE
     Indication: OVARIAN CANCER
     Dosage: UNK, UNKNOWN
     Route: 042
     Dates: start: 2001
  6. TOPOTECAN HYDROCHLORIDE. [Suspect]
     Active Substance: TOPOTECAN HYDROCHLORIDE
     Indication: OVARIAN CANCER
     Dosage: UNK, UNKNOWN
     Route: 042
     Dates: start: 2001

REACTIONS (1)
  - Myelodysplastic syndrome [Unknown]

NARRATIVE: CASE EVENT DATE: 20150513
